FAERS Safety Report 6892960-4 (Version None)
Quarter: 2010Q3

REPORT INFORMATION
  Report Type: 
  Country: None (occurrence: None)
  Receive Date: 20100731
  Receipt Date: 20081125
  Transmission Date: 20110219
  Serious: Yes (Other)
  Sender: FDA-Public Use
  Company Number: US-PFIZER INC-2008099891

PATIENT
  Age: 72 Year
  Sex: Male

DRUGS (3)
  1. GABAPENTIN [Suspect]
     Indication: AGITATION
  2. GABAPENTIN [Suspect]
     Indication: INSOMNIA
  3. SEROQUEL [Suspect]

REACTIONS (3)
  - AGGRESSION [None]
  - PARANOIA [None]
  - SEDATION [None]
